FAERS Safety Report 11619908 (Version 5)
Quarter: 2015Q4

REPORT INFORMATION
  Report Type: Spontaneous
  Country: US (occurrence: US)
  Receive Date: 20151012
  Receipt Date: 20151228
  Transmission Date: 20160304
  Serious: No
  Sender: FDA-Public Use
  Company Number: US-ASTRAZENECA-2015SE94713

PATIENT
  Age: 59 Year
  Sex: Female
  Weight: 66.7 kg

DRUGS (9)
  1. SYMBICORT [Suspect]
     Active Substance: BUDESONIDE\FORMOTEROL FUMARATE DIHYDRATE
     Indication: CHRONIC OBSTRUCTIVE PULMONARY DISEASE
     Dosage: 160/4.5, 2 PUFFS, TWO TIMES A DAY
     Route: 055
     Dates: start: 201508
  2. PREDNISONE. [Concomitant]
     Active Substance: PREDNISONE
  3. ULTRAM [Suspect]
     Active Substance: TRAMADOL HYDROCHLORIDE
     Indication: PAIN
     Route: 065
  4. TRAMADOL. [Concomitant]
     Active Substance: TRAMADOL
     Indication: ANTIINFLAMMATORY THERAPY
     Dosage: 50 MG  EVERY 4 TO 8 HOURS AS REQUIRED
     Route: 048
     Dates: start: 2015
  5. RANITIDINE [Concomitant]
     Active Substance: RANITIDINE\RANITIDINE HYDROCHLORIDE
     Indication: ABDOMINAL DISCOMFORT
  6. OMEPRAZOLE. [Suspect]
     Active Substance: OMEPRAZOLE
     Route: 048
  7. MORPHINE [Concomitant]
     Active Substance: MORPHINE
  8. TYLENOL [Concomitant]
     Active Substance: ACETAMINOPHEN
     Dosage: AS REQUIRED
  9. ZANTAC [Concomitant]
     Active Substance: RANITIDINE HYDROCHLORIDE
     Route: 048
     Dates: start: 2015

REACTIONS (18)
  - Respiratory disorder [Unknown]
  - Pain [Unknown]
  - Fall [Unknown]
  - Body height decreased [Unknown]
  - Wheezing [Unknown]
  - Feeling abnormal [Unknown]
  - Drug ineffective [Unknown]
  - Chest pain [Unknown]
  - Nerve injury [Unknown]
  - Syncope [Unknown]
  - Drug dose omission [Unknown]
  - Gastric ulcer [Unknown]
  - Gastroenteritis viral [Unknown]
  - Urticaria [Unknown]
  - Product quality issue [Unknown]
  - Back pain [Unknown]
  - Malaise [Unknown]
  - Nervousness [Unknown]
